FAERS Safety Report 6079149-6 (Version None)
Quarter: 2009Q1

REPORT INFORMATION
  Report Type: 
  Country: None (occurrence: None)
  Receive Date: 20090216
  Receipt Date: 20090206
  Transmission Date: 20090719
  Serious: Yes (Hospitalization)
  Sender: FDA-Public Use
  Company Number: A0768552A

PATIENT
  Age: 56 Year
  Sex: Male
  Weight: 100 kg

DRUGS (2)
  1. AVANDAMET [Suspect]
     Route: 065
     Dates: start: 20030713, end: 20031124
  2. METFORMIN HCL [Concomitant]
     Dates: start: 19990101, end: 20071001

REACTIONS (4)
  - CARDIAC FAILURE CONGESTIVE [None]
  - MACULAR OEDEMA [None]
  - MYOCARDIAL INFARCTION [None]
  - PULMONARY ARTERIAL HYPERTENSION [None]
